FAERS Safety Report 5160927-2 (Version None)
Quarter: 2006Q4

REPORT INFORMATION
  Report Type: 
  Country: None (occurrence: None)
  Receive Date: 20061130
  Receipt Date: 20051108
  Transmission Date: 20070319
  Serious: No
  Sender: FDA-Public Use
  Company Number: US-BRISTOL-MYERS SQUIBB COMPANY-13171806

PATIENT
  Age: 75 Year
  Sex: Female
  Weight: 59 kg

DRUGS (2)
  1. AVALIDE [Suspect]
     Dosage: DOSE: 150MG/12.5MG
     Dates: end: 20051101
  2. LIPITOR [Concomitant]

REACTIONS (4)
  - DRY MOUTH [None]
  - FATIGUE [None]
  - HEADACHE [None]
  - MUSCLE FATIGUE [None]
